FAERS Safety Report 5099334-X (Version None)
Quarter: 2006Q3

REPORT INFORMATION
  Report Type: 
  Country: None (occurrence: None)
  Receive Date: 20060726
  Receipt Date: 20060606
  Transmission Date: 20061208
  Serious: No
  Sender: FDA-Public Use
  Company Number: 012219

PATIENT
  Age: 47 Year
  Sex: Female

DRUGS (2)
  1. PRIALT [Suspect]
     Indication: TRIGEMINAL NEURALGIA
     Dosage: ONCE/HOUR, INTRATHECAL
     Route: 037
     Dates: start: 20060101
  2. HYDROCHLOROTHIZIDE W/TRIAMTERENE (HYDROCHLOROTHIAZIDE, TRIAMTERENE) [Concomitant]

REACTIONS (6)
  - ARTHRALGIA [None]
  - CONDITION AGGRAVATED [None]
  - MUSCLE SPASMS [None]
  - OEDEMA PERIPHERAL [None]
  - OSTEOARTHRITIS [None]
  - PAIN IN EXTREMITY [None]
